FAERS Safety Report 4776776-0 (Version None)
Quarter: 2005Q3

REPORT INFORMATION
  Report Type: 
  Country: None (occurrence: None)
  Receive Date: 20050923
  Receipt Date: 20050728
  Transmission Date: 20060218
  Serious: Yes (Hospitalization)
  Sender: FDA-Public Use
  Company Number: US-BRISTOL-MYERS SQUIBB COMPANY-13054440

PATIENT
  Age: 82 Year
  Sex: Female

DRUGS (1)
  1. GLUCOPHAGE [Suspect]
     Indication: GLUCOSE TOLERANCE IMPAIRED
     Dates: start: 20041001, end: 20041001

REACTIONS (9)
  - ANOREXIA [None]
  - ASTHENIA [None]
  - FACIAL PAIN [None]
  - FEELING ABNORMAL [None]
  - HEADACHE [None]
  - HYPOGEUSIA [None]
  - INSOMNIA [None]
  - MUSCULOSKELETAL STIFFNESS [None]
  - TRANSIENT ISCHAEMIC ATTACK [None]
